FAERS Safety Report 24265326 (Version 1)
Quarter: 2024Q3

REPORT INFORMATION
  Report Type: Spontaneous
  Country: US (occurrence: US)
  Receive Date: 20240829
  Receipt Date: 20240829
  Transmission Date: 20241016
  Serious: No
  Sender: GALDERMA
  Company Number: US-GALDERMA-US2024004738

PATIENT

DRUGS (2)
  1. CLOBEX [Suspect]
     Active Substance: CLOBETASOL PROPIONATE
     Indication: Product used for unknown indication
     Dosage: 1 DOSAGE FORM
     Route: 061
  2. BETAMETHASONE [Concomitant]
     Active Substance: BETAMETHASONE\BETAMETHASONE DIPROPIONATE
     Indication: Product used for unknown indication

REACTIONS (1)
  - Drug ineffective [Unknown]
